FAERS Safety Report 10510023 (Version 2)
Quarter: 2014Q4

REPORT INFORMATION
  Report Type: Spontaneous
  Country: US (occurrence: None)
  Receive Date: 20141008
  Receipt Date: 20141009
  Transmission Date: 20150528
  Serious: Yes (Hospitalization, Other)
  Sender: FDA-Public Use
  Company Number: ADR-2014-01828

PATIENT
  Age: 43 Year
  Sex: Female

DRUGS (2)
  1. ORAL BACLOFEN [Suspect]
     Active Substance: BACLOFEN
  2. COMPOUNDED BACLOFEN INTRATHECAL [Suspect]
     Active Substance: BACLOFEN
     Indication: MULTIPLE SCLEROSIS

REACTIONS (6)
  - Unresponsive to stimuli [None]
  - Drug withdrawal syndrome [None]
  - Muscle spasticity [None]
  - Hypotonia [None]
  - Overdose [None]
  - Glassy eyes [None]

NARRATIVE: CASE EVENT DATE: 20140925
